FAERS Safety Report 6258423-4 (Version None)
Quarter: 2009Q3

REPORT INFORMATION
  Report Type: 
  Country: None (occurrence: None)
  Receive Date: 20090702
  Receipt Date: 20090702
  Transmission Date: 20100115
  Serious: Yes (Life-Threatening)
  Sender: FDA-Public Use
  Company Number: None

PATIENT
  Age: 44 Year
  Sex: Male
  Weight: 84.369 kg

DRUGS (2)
  1. PACLITAXEL [Suspect]
     Indication: TRANSITIONAL CELL CARCINOMA
     Dosage: 162.4 MG. IV WEEKLY
     Route: 042
     Dates: start: 20090612, end: 20090626
  2. CETUXIMAB [Concomitant]

REACTIONS (5)
  - FLUSHING [None]
  - INFUSION RELATED REACTION [None]
  - PULSE ABSENT [None]
  - RESPIRATORY ARREST [None]
  - UNRESPONSIVE TO STIMULI [None]
